FAERS Safety Report 7683848-X (Version None)
Quarter: 2011Q3

REPORT INFORMATION
  Report Type: 
  Country: None (occurrence: None)
  Receive Date: 20110815
  Receipt Date: 20110808
  Transmission Date: 20111222
  Serious: Yes (Hospitalization, Other)
  Sender: FDA-Public Use
  Company Number: US-BAYER-2011-029320

PATIENT
  Age: 38 Year
  Sex: Female
  Weight: 65.76 kg

DRUGS (19)
  1. NASONEX [Concomitant]
     Indication: MULTIPLE ALLERGIES
     Route: 045
  2. ASMANEX TWISTHALER [Concomitant]
     Indication: ASTHMA
     Route: 045
  3. SINGULAIR [Concomitant]
     Indication: ASTHMA
     Route: 048
  4. YAZ [Suspect]
     Indication: MENSTRUATION IRREGULAR
     Dosage: UNK
     Dates: start: 20060101, end: 20080701
  5. DURAPHEN DM [Concomitant]
     Indication: COUGH
     Route: 048
  6. SIMVASTATIN [Concomitant]
     Indication: BLOOD CHOLESTEROL INCREASED
     Route: 048
  7. NEXIUM [Concomitant]
     Indication: GASTROOESOPHAGEAL REFLUX DISEASE
     Route: 048
  8. CEFDINIR [Concomitant]
     Indication: LOCALISED INFECTION
     Dosage: UNK
     Dates: start: 20080709
  9. ZYRTEC [Concomitant]
     Indication: MULTIPLE ALLERGIES
     Route: 048
  10. DIFLUCAN [Concomitant]
     Dosage: UNK
     Route: 048
     Dates: start: 20080530
  11. KEFLEX [Concomitant]
     Indication: LOCALISED INFECTION
     Dosage: UNK
     Route: 048
     Dates: start: 20080530
  12. YASMIN [Suspect]
     Indication: MENSTRUATION IRREGULAR
     Dosage: UNK
     Dates: start: 20060101, end: 20080701
  13. ALBUTEROL SULFATE AUTOHALER [Concomitant]
     Indication: ASTHMA
     Route: 045
  14. DECONGESTANTS AND ANTIALLERGICS [Concomitant]
     Route: 048
  15. SYNTHROID [Concomitant]
     Indication: HYPOTHYROIDISM
     Route: 048
  16. ADVAIR DISKUS 100/50 [Concomitant]
     Indication: ASTHMA
     Route: 045
  17. XOPENEX [Concomitant]
     Indication: ASTHMA
     Route: 045
  18. COMBIVENT [Concomitant]
     Indication: ASTHMA
     Route: 045
  19. PREDNISONE [Concomitant]
     Dosage: UNK
     Route: 048
     Dates: start: 20080703

REACTIONS (2)
  - PULMONARY EMBOLISM [None]
  - TACHYCARDIA [None]
